FAERS Safety Report 18290247 (Version 1)
Quarter: 2020Q3

REPORT INFORMATION
  Report Type: Report from Study
  Country: US (occurrence: US)
  Receive Date: 20200921
  Receipt Date: 20200921
  Transmission Date: 20201103
  Serious: Yes (Death)
  Sender: FDA-Public Use
  Company Number: US-PFIZER INC-2020361031

PATIENT

DRUGS (2)
  1. IRINOTECAN HCL [Suspect]
     Active Substance: IRINOTECAN HYDROCHLORIDE
     Indication: NEOPLASM MALIGNANT
     Dosage: UNK MG/M2, CYCLIC
     Route: 042
  2. RRX 001 [Concomitant]
     Indication: NEOPLASM MALIGNANT
     Dosage: UNK MG, CYCLIC (ONCE PER WEEK FOR 3 WEEKS AND THEREAFTER ONCE EVERY TWO WEEKS)
     Route: 041

REACTIONS (1)
  - Neutropenic colitis [Fatal]
